FAERS Safety Report 5856583-8 (Version None)
Quarter: 2008Q3

REPORT INFORMATION
  Report Type: 
  Country: None (occurrence: None)
  Receive Date: 20080822
  Receipt Date: 20080822
  Transmission Date: 20090109
  Serious: Yes (Hospitalization)
  Sender: FDA-Public Use
  Company Number: None

PATIENT
  Age: 90 Year
  Sex: Male
  Weight: 71.4 kg

DRUGS (1)
  1. LISINOPRIL [Suspect]
     Indication: CARDIAC FAILURE CONGESTIVE
     Dosage: 2.5 MG EVERY DAY PO
     Route: 048
     Dates: start: 20080814, end: 20080821

REACTIONS (1)
  - ANGIOEDEMA [None]
